FAERS Safety Report 9879742 (Version 2)
Quarter: 2014Q1

REPORT INFORMATION
  Report Type: Spontaneous
  Country: IT (occurrence: IT)
  Receive Date: 20140206
  Receipt Date: 20140206
  Transmission Date: 20141002
  Serious: Yes (Hospitalization)
  Sender: FDA-Public Use
  Company Number: IT-TEVA-384276ISR

PATIENT
  Age: 56 Year
  Sex: Female

DRUGS (6)
  1. PARACETAMOL [Suspect]
     Dosage: 28 DOSAGE FORMS DAILY;
     Route: 048
     Dates: start: 20120805, end: 20120805
  2. VENLAFAXINE [Suspect]
     Dosage: 21 DOSAGE FORMS DAILY;
     Route: 048
     Dates: start: 20120805, end: 20120805
  3. LEXOTAN [Suspect]
     Dosage: 51 DOSAGE FORMS DAILY;
     Route: 048
     Dates: start: 20120805, end: 20120805
  4. PATROL 37.5MG/325MG [Suspect]
     Dosage: 4 DOSAGE FORMS DAILY; 1 DOSAGE FORM = TRAMADOL 37.5MG + PARACETAMOL 325MG
     Route: 048
     Dates: start: 20120805, end: 20120805
  5. MOMENT [Suspect]
     Dosage: 18 DOSAGE FORMS DAILY;
     Route: 048
     Dates: start: 20120805, end: 20120805
  6. CIPRALEX [Suspect]
     Dosage: 18 DOSAGE FORMS DAILY;
     Route: 048
     Dates: start: 20120805, end: 20120805

REACTIONS (4)
  - Drug abuse [Recovering/Resolving]
  - Sopor [Recovering/Resolving]
  - Respiratory acidosis [Recovering/Resolving]
  - Respiratory depression [Recovering/Resolving]
